FAERS Safety Report 4486426-9 (Version None)
Quarter: 2004Q4

REPORT INFORMATION
  Report Type: 
  Country: None (occurrence: None)
  Receive Date: 20041026
  Receipt Date: 20041026
  Transmission Date: 20050328
  Serious: Yes (Hospitalization)
  Sender: FDA-Public Use
  Company Number: None

PATIENT
  Sex: Female
  Weight: 105.2345 kg

DRUGS (3)
  1. CARBOPLATIN [Suspect]
     Dates: start: 20040726, end: 20040830
  2. DOCETAXEL [Suspect]
     Dates: start: 20040726, end: 20040830
  3. RADIATION THERAPY [Suspect]
     Indication: NON-SMALL CELL LUNG CANCER
     Dosage: 5 DAYS PER WEEK
     Dates: start: 20040726, end: 20040903

REACTIONS (8)
  - DEHYDRATION [None]
  - GENERAL NUTRITION DISORDER [None]
  - HIATUS HERNIA [None]
  - NAUSEA [None]
  - NEUTROPENIA [None]
  - RADIATION OESOPHAGITIS [None]
  - UPPER GASTROINTESTINAL HAEMORRHAGE [None]
  - VOMITING [None]
